FAERS Safety Report 16536374 (Version 1)
Quarter: 2019Q3

REPORT INFORMATION
  Report Type: Spontaneous
  Country: IT (occurrence: IT)
  Receive Date: 20190706
  Receipt Date: 20190706
  Transmission Date: 20191004
  Serious: Yes (Hospitalization)
  Sender: FDA-Public Use
  Company Number: IT-ROCHE-2348514

PATIENT
  Age: 60 Year
  Sex: Female

DRUGS (2)
  1. CAPECITABINE. [Suspect]
     Active Substance: CAPECITABINE
     Indication: PROPHYLACTIC CHEMOTHERAPY
     Dosage: RECEIVED DOSE ON 06/JUN/2019
     Route: 048
     Dates: start: 20190601
  2. ZOFRAN [Concomitant]
     Active Substance: ONDANSETRON HYDROCHLORIDE
     Route: 048

REACTIONS (6)
  - Stomatitis [Unknown]
  - Vomiting [Unknown]
  - Vulvovaginal candidiasis [Unknown]
  - Diarrhoea [Unknown]
  - Oesophagitis [Unknown]
  - Nausea [Unknown]

NARRATIVE: CASE EVENT DATE: 20190606
